FAERS Safety Report 5472362-8 (Version None)
Quarter: 2007Q3

REPORT INFORMATION
  Report Type: 
  Country: None (occurrence: None)
  Receive Date: 20070930
  Receipt Date: 20070920
  Transmission Date: 20080115
  Serious: Yes (Other)
  Sender: FDA-Public Use
  Company Number: US-SHR-US-2007-010077

PATIENT
  Age: 58 Year
  Sex: Female
  Weight: 101 kg

DRUGS (8)
  1. BETASERON [Suspect]
     Indication: RELAPSING-REMITTING MULTIPLE SCLEROSIS
     Dosage: 8 MIU, EVERY 2D
     Route: 058
     Dates: start: 20050614, end: 20070517
  2. HEPARIN [Concomitant]
  3. LISINOPRIL [Concomitant]
  4. ZOCOR [Concomitant]
  5. PREVACID [Concomitant]
  6. MYO CALCIUM NASAL SPRAY [Concomitant]
  7. BACLOFEN [Concomitant]
  8. COLACE [Concomitant]

REACTIONS (6)
  - ASTHENIA [None]
  - HEART RATE DECREASED [None]
  - HYPOTENSION [None]
  - INJECTION SITE ERYTHEMA [None]
  - LUNG DISORDER [None]
  - MULTIPLE SCLEROSIS [None]
